FAERS Safety Report 5974695-5 (Version None)
Quarter: 2008Q4

REPORT INFORMATION
  Report Type: 
  Country: None (occurrence: None)
  Receive Date: 20081201
  Receipt Date: 20081127
  Transmission Date: 20090506
  Serious: Yes (Other)
  Sender: FDA-Public Use
  Company Number: GB-PFIZER INC-2008100343

PATIENT
  Age: 45 Year
  Sex: Female
  Weight: 62 kg

DRUGS (3)
  1. CHAMPIX [Suspect]
     Indication: SMOKING CESSATION THERAPY
     Route: 048
     Dates: start: 20081008, end: 20081015
  2. LEVOCETIRIZINE [Concomitant]
     Indication: RHINITIS
     Route: 048
     Dates: start: 20081008
  3. MOMETASONE FUROATE [Concomitant]
     Indication: RHINITIS
     Dates: start: 20081008

REACTIONS (1)
  - IMPAIRED DRIVING ABILITY [None]
